FAERS Safety Report 9249932 (Version 1)
Quarter: 2013Q2

REPORT INFORMATION
  Report Type: Spontaneous
  Country: US (occurrence: US)
  Receive Date: 20130423
  Receipt Date: 20130423
  Transmission Date: 20140414
  Serious: Yes (Other)
  Sender: FDA-Public Use
  Company Number: US-BRISTOL-MYERS SQUIBB COMPANY-18783670

PATIENT
  Age: 70 Year
  Sex: Female
  Weight: 82.54 kg

DRUGS (6)
  1. COUMADIN [Suspect]
     Indication: DEEP VEIN THROMBOSIS
     Dosage: 1DF=5MG ON MONDAY, WEDNESDAY, FRIDAY, SATURDAY?2.5MG ON TUESDAY, THURSDAY, SUNDAY
     Dates: start: 1998
  2. ASPIRIN [Suspect]
  3. LIPITOR [Concomitant]
  4. QUINAPRIL HCL [Concomitant]
  5. TRANXENE [Concomitant]
  6. VITAMIN E [Concomitant]
     Dosage: 1DF=400 UNIT.

REACTIONS (5)
  - Dysphonia [Not Recovered/Not Resolved]
  - Presyncope [Unknown]
  - Oesophagitis [Unknown]
  - Gastritis [Unknown]
  - Gastrooesophageal reflux disease [Unknown]
